FAERS Safety Report 14970079 (Version 1)
Quarter: 2018Q2

REPORT INFORMATION
  Report Type: Spontaneous
  Country: US (occurrence: US)
  Receive Date: 20180514
  Receipt Date: 20180514
  Transmission Date: 20180711
  Serious: No
  Sender: FDA-Public Use
  Company Number: None

PATIENT
  Age: 74 Year
  Sex: Male

DRUGS (13)
  1. FISH OIL [Concomitant]
     Active Substance: FISH OIL
  2. GLIMEPIRIDE. [Concomitant]
     Active Substance: GLIMEPIRIDE
  3. CINNAMON. [Concomitant]
     Active Substance: CINNAMON
  4. CLARITIN [Concomitant]
     Active Substance: LORATADINE
  5. VIAGRA [Concomitant]
     Active Substance: SILDENAFIL CITRATE
  6. AVODERT [Concomitant]
  7. JANUMET [Concomitant]
     Active Substance: METFORMIN HYDROCHLORIDE\SITAGLIPTIN PHOSPHATE
  8. LIPITOR [Concomitant]
     Active Substance: ATORVASTATIN CALCIUM
  9. CALCIUM [Concomitant]
     Active Substance: CALCIUM
  10. VELTASSA [Suspect]
     Active Substance: PATIROMER
     Indication: HYPERKALAEMIA
     Route: 048
     Dates: start: 20180419
  11. MULTIVITAMIN [Concomitant]
     Active Substance: VITAMINS
  12. ASPIRIN. [Concomitant]
     Active Substance: ASPIRIN
  13. FLOMAX [Concomitant]
     Active Substance: TAMSULOSIN HYDROCHLORIDE

REACTIONS (4)
  - Drug intolerance [None]
  - Flatulence [None]
  - Abdominal discomfort [None]
  - Abdominal pain [None]

NARRATIVE: CASE EVENT DATE: 20180511
